FAERS Safety Report 17143560 (Version 1)
Quarter: 2019Q4

REPORT INFORMATION
  Report Type: Spontaneous
  Country: US (occurrence: US)
  Receive Date: 20191211
  Receipt Date: 20191211
  Transmission Date: 20200122
  Serious: Yes (Death, Life-Threatening)
  Sender: FDA-Public Use
  Company Number: US-AMERICAN REGENT INC-20191233

PATIENT
  Age: 95 Year
  Sex: Female
  Weight: 64 kg

DRUGS (2)
  1. VENOFER [Suspect]
     Active Substance: IRON SUCROSE
     Indication: IRON DEFICIENCY ANAEMIA
     Dosage: 100 MG, EVERY TREATMENT 1 DAYS
     Dates: start: 20190525, end: 20190525
  2. MIRCERA [Suspect]
     Active Substance: METHOXY POLYETHYLENE GLYCOL-EPOETIN BETA
     Dosage: 30 MCG, 1 IN 2 WK 1 DAYS
     Dates: start: 20190525, end: 20190525

REACTIONS (2)
  - Arteriosclerosis coronary artery [Fatal]
  - Unresponsive to stimuli [Fatal]

NARRATIVE: CASE EVENT DATE: 20190525
